FAERS Safety Report 18322959 (Version 2)
Quarter: 2020Q4

REPORT INFORMATION
  Report Type: Spontaneous
  Country: US (occurrence: US)
  Receive Date: 20200928
  Receipt Date: 20201006
  Transmission Date: 20210113
  Serious: Yes (Other)
  Sender: FDA-Public Use
  Company Number: US-PFIZER INC-2020370591

PATIENT
  Age: 66 Year
  Sex: Female

DRUGS (38)
  1. TAXOTERE [Suspect]
     Active Substance: DOCETAXEL
     Dosage: 75 MG/M2, SINGLE
     Dates: start: 20180216, end: 20180216
  2. HERCEPTIN [Concomitant]
     Active Substance: TRASTUZUMAB
     Dosage: 440 MG
     Dates: start: 20180125, end: 20180125
  3. HERCEPTIN [Concomitant]
     Active Substance: TRASTUZUMAB
     Dosage: 440 MG
     Dates: start: 20180309, end: 20180309
  4. PARAPLATIN [Concomitant]
     Active Substance: CARBOPLATIN
     Dosage: 657 MG
     Dates: start: 20180125, end: 20180125
  5. NEULASTA [Concomitant]
     Active Substance: PEGFILGRASTIM
     Dosage: 6 MG
     Dates: start: 20180103, end: 20180103
  6. NEULASTA [Concomitant]
     Active Substance: PEGFILGRASTIM
     Dosage: 6 MG
     Dates: start: 20180216, end: 20180216
  7. NEULASTA [Concomitant]
     Active Substance: PEGFILGRASTIM
     Dosage: 6 MG
     Dates: start: 20180330, end: 20180330
  8. FOSAMAX [Concomitant]
     Active Substance: ALENDRONATE SODIUM
     Dosage: 35 MG
     Route: 048
  9. NARATRIPTAN [Concomitant]
     Active Substance: NARATRIPTAN HYDROCHLORIDE
     Dosage: UNK
  10. HERCEPTIN [Concomitant]
     Active Substance: TRASTUZUMAB
     Dosage: 460 MG
     Dates: start: 20180330, end: 20180330
  11. HERCEPTIN [Concomitant]
     Active Substance: TRASTUZUMAB
     Dosage: 460 MG
     Dates: start: 20180419, end: 20180419
  12. SYNTHROID [Concomitant]
     Active Substance: LEVOTHYROXINE SODIUM
     Dosage: 100 UG
     Route: 048
  13. VERELAN [Concomitant]
     Active Substance: VERAPAMIL HYDROCHLORIDE
     Dosage: UNK
  14. TRAMADOL HYDROCHLORIDE. [Concomitant]
     Active Substance: TRAMADOL HYDROCHLORIDE
     Dosage: 50 MG
     Route: 048
  15. PARAPLATIN [Concomitant]
     Active Substance: CARBOPLATIN
     Indication: CHEMOTHERAPY
     Dosage: 639 MG
     Dates: start: 20171212, end: 20171212
  16. TAXOTERE [Suspect]
     Active Substance: DOCETAXEL
     Dosage: 75 MG/M2, SINGLE
     Dates: start: 20180309, end: 20180309
  17. HERCEPTIN [Concomitant]
     Active Substance: TRASTUZUMAB
     Indication: CHEMOTHERAPY
     Dosage: 590 MG
     Dates: start: 20171212, end: 20171212
  18. PARAPLATIN [Concomitant]
     Active Substance: CARBOPLATIN
     Dosage: 664 MG
     Dates: start: 20180103, end: 20180103
  19. PARAPLATIN [Concomitant]
     Active Substance: CARBOPLATIN
     Dosage: 677 MG
     Dates: start: 20180330, end: 20180330
  20. PROTONIX [Concomitant]
     Active Substance: PANTOPRAZOLE SODIUM
     Dosage: 40 MG
  21. AMBIEN [Concomitant]
     Active Substance: ZOLPIDEM TARTRATE
     Dosage: UNK
  22. ALENDRONIC ACID [Concomitant]
     Active Substance: ALENDRONIC ACID
     Dosage: UNK
     Route: 048
  23. ANASTROZOLE. [Concomitant]
     Active Substance: ANASTROZOLE
     Dosage: 1 MG
     Route: 048
  24. TAXOTERE [Suspect]
     Active Substance: DOCETAXEL
     Dosage: 75 MG/M2, SINGLE
     Dates: start: 20180103, end: 20180103
  25. SENOKOT [Concomitant]
     Active Substance: SENNOSIDES
     Dosage: UNK
  26. TAXOTERE [Suspect]
     Active Substance: DOCETAXEL
     Dosage: 75 MG/M2, SINGLE
     Dates: start: 20180330, end: 20180330
  27. NEULASTA [Concomitant]
     Active Substance: PEGFILGRASTIM
     Dosage: 6 MG
     Dates: start: 20171212, end: 20171212
  28. NEULASTA [Concomitant]
     Active Substance: PEGFILGRASTIM
     Dosage: 6 MG
     Dates: start: 20180309, end: 20180309
  29. LEVSIN [Concomitant]
     Active Substance: HYOSCYAMINE SULFATE
     Dosage: UNK
  30. TAXOTERE [Suspect]
     Active Substance: DOCETAXEL
     Indication: BREAST CANCER FEMALE
     Dosage: 75 MG/M2, SINGLE
     Dates: start: 20171212, end: 20171212
  31. TAXOTERE [Suspect]
     Active Substance: DOCETAXEL
     Dosage: 75 MG/M2, SINGLE
     Dates: start: 20180125, end: 20180125
  32. HERCEPTIN [Concomitant]
     Active Substance: TRASTUZUMAB
     Dosage: 440 MG
     Dates: start: 20180216, end: 20180216
  33. PARAPLATIN [Concomitant]
     Active Substance: CARBOPLATIN
     Dosage: 664 MG
     Dates: start: 20180216, end: 20180216
  34. NEULASTA [Concomitant]
     Active Substance: PEGFILGRASTIM
     Dosage: 6 MG
     Dates: start: 20180125, end: 20180125
  35. DOCETAXEL. [Suspect]
     Active Substance: DOCETAXEL
     Indication: BREAST CANCER FEMALE
     Dosage: UNK
  36. HERCEPTIN [Concomitant]
     Active Substance: TRASTUZUMAB
     Dosage: 440 MG
     Dates: start: 20180103, end: 20180103
  37. PARAPLATIN [Concomitant]
     Active Substance: CARBOPLATIN
     Dosage: 692 MG
     Dates: start: 20180309, end: 20180309
  38. FLONASE [Concomitant]
     Active Substance: FLUTICASONE PROPIONATE
     Dosage: 0.05 MG

REACTIONS (9)
  - Dry eye [Unknown]
  - Lacrimation increased [Unknown]
  - Blepharitis [Unknown]
  - Rosacea [Unknown]
  - Acrochordon [Unknown]
  - Eye injury [Unknown]
  - Meibomian gland dysfunction [Unknown]
  - Cataract nuclear [Unknown]
  - Sweat gland tumour [Unknown]
